FAERS Safety Report 18269031 (Version 2)
Quarter: 2020Q4

REPORT INFORMATION
  Report Type: Spontaneous
  Country: US (occurrence: US)
  Receive Date: 20200915
  Receipt Date: 20201027
  Transmission Date: 20210113
  Serious: No
  Sender: FDA-Public Use
  Company Number: US-JNJFOC-20200915822

PATIENT

DRUGS (1)
  1. RISPERDAL [Suspect]
     Active Substance: RISPERIDONE
     Indication: PRODUCT USED FOR UNKNOWN INDICATION
     Dosage: STRENGTH 1 MG/ML
     Route: 048

REACTIONS (2)
  - Product label issue [Unknown]
  - Overdose [Unknown]

NARRATIVE: CASE EVENT DATE: 2020
